FAERS Safety Report 19575141 (Version 1)
Quarter: 2021Q3

REPORT INFORMATION
  Report Type: Spontaneous
  Country: US (occurrence: US)
  Receive Date: 20210716
  Receipt Date: 20210716
  Transmission Date: 20211014
  Serious: Yes (Hospitalization)
  Sender: FDA-Public Use
  Company Number: None

PATIENT
  Sex: Male
  Weight: 74.7 kg

DRUGS (20)
  1. ACYLOVIR [Concomitant]
  2. HYDROCORISONE [Concomitant]
  3. PYRIDOXINE [Concomitant]
     Active Substance: PYRIDOXINE
  4. SIDENAFIL [Concomitant]
     Active Substance: SILDENAFIL
  5. CREON [Concomitant]
     Active Substance: PANCRELIPASE AMYLASE\PANCRELIPASE LIPASE\PANCRELIPASE PROTEASE
  6. LISINOPRIL. [Concomitant]
     Active Substance: LISINOPRIL
  7. LOPERAMIDE [Concomitant]
     Active Substance: LOPERAMIDE
  8. PROAIR HFA [Concomitant]
     Active Substance: ALBUTEROL SULFATE
  9. CARDIZEM [Concomitant]
     Active Substance: DILTIAZEM HYDROCHLORIDE
  10. ELIQUIS [Concomitant]
     Active Substance: APIXABAN
  11. EMLA [Concomitant]
     Active Substance: LIDOCAINE\PRILOCAINE
  12. FUROSEMIDE. [Concomitant]
     Active Substance: FUROSEMIDE
  13. METROPROLOL [Concomitant]
     Active Substance: METOPROLOL
  14. FOLIC ACID. [Concomitant]
     Active Substance: FOLIC ACID
  15. CYCLOPHOSPHAMIDE. [Suspect]
     Active Substance: CYCLOPHOSPHAMIDE
     Indication: PLASMA CELL MYELOMA
     Dosage: ?          OTHER FREQUENCY:DAYS 1,8,15 AND 28;?
     Route: 048
  16. CALTRATE [Concomitant]
     Active Substance: CALCIUM CARBONATE
  17. VITAMIN D3 [Concomitant]
     Active Substance: CHOLECALCIFEROL
  18. LOTRIMIN [Concomitant]
     Active Substance: CLOTRIMAZOLE
  19. PANTOPRAZOLE [Concomitant]
     Active Substance: PANTOPRAZOLE
  20. VOLTAREN [Concomitant]
     Active Substance: DICLOFENAC SODIUM

REACTIONS (1)
  - Hospitalisation [None]
